FAERS Safety Report 16412760 (Version 1)
Quarter: 2019Q2

REPORT INFORMATION
  Report Type: Spontaneous
  Country: US (occurrence: US)
  Receive Date: 20190611
  Receipt Date: 20190611
  Transmission Date: 20190711
  Serious: No
  Sender: FDA-Public Use
  Company Number: US-TEVA-2019-US-1053354

PATIENT
  Sex: Female

DRUGS (1)
  1. COPAXONE [Suspect]
     Active Substance: GLATIRAMER ACETATE
     Dates: start: 201902

REACTIONS (4)
  - Injection site erythema [Unknown]
  - Injection site extravasation [Unknown]
  - Injection site bruising [Unknown]
  - Injection site mass [Unknown]
